FAERS Safety Report 7039561-5 (Version None)
Quarter: 2010Q4

REPORT INFORMATION
  Report Type: 
  Country: None (occurrence: None)
  Receive Date: 20101012
  Receipt Date: 20101006
  Transmission Date: 20110411
  Serious: Yes (Hospitalization)
  Sender: FDA-Public Use
  Company Number: A0779035A

PATIENT
  Age: 60 Year
  Sex: Male
  Weight: 125 kg

DRUGS (11)
  1. AVANDIA [Suspect]
     Indication: DIABETES MELLITUS
     Dosage: 4MG PER DAY
     Route: 048
     Dates: start: 20020601, end: 20060601
  2. AVANDARYL [Suspect]
     Indication: DIABETES MELLITUS
     Route: 050
     Dates: start: 20060623, end: 20080401
  3. METFORMIN [Concomitant]
  4. STARLIX [Concomitant]
  5. AMARYL [Concomitant]
  6. TOPROL-XL [Concomitant]
  7. ZOCOR [Concomitant]
  8. LIPITOR [Concomitant]
  9. KLONOPIN [Concomitant]
  10. PROZAC [Concomitant]
  11. ZESTRIL [Concomitant]

REACTIONS (1)
  - MYOCARDIAL INFARCTION [None]
